FAERS Safety Report 17694944 (Version 4)
Quarter: 2020Q2

REPORT INFORMATION
  Report Type: Spontaneous
  Country: DE (occurrence: DE)
  Receive Date: 20200422
  Receipt Date: 20200526
  Transmission Date: 20200714
  Serious: Yes (Other)
  Sender: FDA-Public Use
  Company Number: DE-BAUSCH-BL-2020-011287

PATIENT
  Age: 45 Year
  Sex: Female
  Weight: 92 kg

DRUGS (13)
  1. PREDNISOLONE. [Suspect]
     Active Substance: PREDNISOLONE
     Dosage: FLARE MEDICATION 1-0-0
     Route: 048
     Dates: start: 201811, end: 201811
  2. HYDROXYCHLOROQUINE [Suspect]
     Active Substance: HYDROXYCHLOROQUINE
     Indication: RHEUMATOID ARTHRITIS
     Dosage: 1-0-1
     Route: 048
     Dates: start: 201804, end: 201811
  3. PREDNISOLONE. [Suspect]
     Active Substance: PREDNISOLONE
     Indication: RHEUMATOID ARTHRITIS
     Dosage: PERMANENT 1-0-0
     Route: 048
     Dates: start: 201609, end: 201811
  4. PREDNISOLONE. [Suspect]
     Active Substance: PREDNISOLONE
     Dosage: INTERMITTENT USAGE; LOW-DOSE; TWO WEEKS BEFORE PRESENTATION
     Route: 048
     Dates: start: 2018, end: 2018
  5. PREDNISOLONE. [Suspect]
     Active Substance: PREDNISOLONE
     Dosage: FLARE MEDICATION 1-0-0
     Route: 048
     Dates: start: 201811, end: 201811
  6. METHOTREXATE. [Suspect]
     Active Substance: METHOTREXATE
     Indication: RHEUMATOID ARTHRITIS
     Route: 058
     Dates: start: 201606, end: 201710
  7. SULFASALAZINE. [Suspect]
     Active Substance: SULFASALAZINE
     Indication: RHEUMATOID ARTHRITIS
     Dosage: 2-0-2
     Route: 048
     Dates: start: 201710, end: 201712
  8. PREDNISOLONE. [Suspect]
     Active Substance: PREDNISOLONE
     Dosage: FLARE MEDICATION 1-0-0
     Route: 048
     Dates: start: 201811, end: 201811
  9. PREDNISOLONE. [Suspect]
     Active Substance: PREDNISOLONE
     Dosage: FLARE MEDICATION 1-0-0
     Route: 048
     Dates: start: 201811, end: 201811
  10. METOPROLOL. [Concomitant]
     Active Substance: METOPROLOL
     Indication: HYPERTENSION
  11. PREDNISOLONE. [Suspect]
     Active Substance: PREDNISOLONE
     Dosage: FLARE MEDICATION 1-0-0
     Route: 048
     Dates: start: 201811, end: 201811
  12. LEFLUNOMIDE. [Suspect]
     Active Substance: LEFLUNOMIDE
     Indication: RHEUMATOID ARTHRITIS
     Dosage: INTERMITTENT USAGE 1-0-0
     Route: 048
     Dates: start: 201704, end: 201911
  13. AMLODIPINE [Concomitant]
     Active Substance: AMLODIPINE BESYLATE
     Indication: HYPERTENSION

REACTIONS (1)
  - Mycobacterium marinum infection [Recovering/Resolving]

NARRATIVE: CASE EVENT DATE: 201809
